FAERS Safety Report 13235029 (Version 2)
Quarter: 2017Q2

REPORT INFORMATION
  Report Type: Spontaneous
  Country: US (occurrence: US)
  Receive Date: 20170215
  Receipt Date: 20170418
  Transmission Date: 20170830
  Serious: No
  Sender: FDA-Public Use
  Company Number: US-TEVA-732379ACC

PATIENT
  Age: 22 Year
  Sex: Female
  Weight: 72.64 kg

DRUGS (2)
  1. SE 120 MICROGESTIN [Concomitant]
     Indication: CONTRACEPTION
     Dosage: 3-4 YEAR
  2. PLAN B ONE-STEP [Suspect]
     Active Substance: LEVONORGESTREL
     Indication: POST COITAL CONTRACEPTION
     Dates: start: 20170114, end: 20170114

REACTIONS (4)
  - Abdominal pain upper [Recovered/Resolved]
  - Pelvic pain [Recovered/Resolved]
  - Feeling abnormal [Unknown]
  - Dysmenorrhoea [Recovered/Resolved]

NARRATIVE: CASE EVENT DATE: 20170114
